FAERS Safety Report 15133202 (Version 2)
Quarter: 2018Q3

REPORT INFORMATION
  Report Type: Spontaneous
  Country: JP (occurrence: JP)
  Receive Date: 20180712
  Receipt Date: 20180906
  Transmission Date: 20181010
  Serious: Yes (Hospitalization, Other)
  Sender: FDA-Public Use
  Company Number: JP-009507513-1806JPN000981J

PATIENT
  Age: 74 Year
  Sex: Male
  Weight: 49 kg

DRUGS (4)
  1. CELECOX [Concomitant]
     Active Substance: CELECOXIB
     Indication: PAIN
     Dosage: 100 MG, BID
     Route: 048
     Dates: start: 20180330
  2. REBAMIPIDE [Concomitant]
     Active Substance: REBAMIPIDE
     Indication: PAIN
     Dosage: 100 MG, BID
     Route: 048
     Dates: start: 20180330
  3. KEYTRUDA [Suspect]
     Active Substance: PEMBROLIZUMAB
     Indication: NON-SMALL CELL LUNG CANCER RECURRENT
     Dosage: 200 MG, Q3W
     Route: 041
     Dates: start: 20180420, end: 20180531
  4. COCARL [Concomitant]
     Active Substance: ACETAMINOPHEN
     Indication: PAIN
     Dosage: 1 G, BID
     Route: 048
     Dates: start: 20180330

REACTIONS (2)
  - Malignant neoplasm progression [Unknown]
  - Interstitial lung disease [Recovering/Resolving]

NARRATIVE: CASE EVENT DATE: 20180607
